FAERS Safety Report 6344552-3 (Version None)
Quarter: 2009Q3

REPORT INFORMATION
  Report Type: 
  Country: None (occurrence: None)
  Receive Date: 20090908
  Receipt Date: 20090813
  Transmission Date: 20100115
  Serious: No
  Sender: FDA-Public Use
  Company Number: US-BAYER-200913299BCC

PATIENT
  Age: 61 Year
  Sex: Female
  Weight: 82 kg

DRUGS (1)
  1. ALEVE [Suspect]
     Indication: HEADACHE
     Dosage: TOTAL DAILY DOSE: 440 MG  UNIT DOSE: 220 MG
     Route: 048
     Dates: start: 20090811

REACTIONS (3)
  - OEDEMA PERIPHERAL [None]
  - PRURITUS [None]
  - URTICARIA [None]
